FAERS Safety Report 10474008 (Version 1)
Quarter: 2014Q3

REPORT INFORMATION
  Report Type: Spontaneous
  Country: US (occurrence: US)
  Receive Date: 20140924
  Receipt Date: 20140924
  Transmission Date: 20150326
  Serious: Yes (Other)
  Sender: FDA-Public Use
  Company Number: US-GLAXOSMITHKLINE-A1090255A

PATIENT
  Age: 61 Year
  Sex: Female

DRUGS (2)
  1. INFLUENZA VACCINE UNSPECIFIED 2014-2015 SEASON [Suspect]
     Active Substance: INFLUENZA VIRUS VACCINE
     Indication: PROPHYLAXIS
     Route: 065
     Dates: start: 20140917, end: 20140917
  2. ADVAIR HFA [Suspect]
     Active Substance: FLUTICASONE PROPIONATE\SALMETEROL XINAFOATE
     Indication: ASTHMA
     Dates: start: 2004

REACTIONS (3)
  - Asthma [Unknown]
  - Coronary artery bypass [Unknown]
  - Malaise [Unknown]

NARRATIVE: CASE EVENT DATE: 2005
